FAERS Safety Report 8276668-9 (Version None)
Quarter: 2012Q2

REPORT INFORMATION
  Report Type: 
  Country: None (occurrence: None)
  Receive Date: 20120412
  Receipt Date: 20120412
  Transmission Date: 20120825
  Serious: Yes (Hospitalization, Disabling, Other)
  Sender: FDA-Public Use
  Company Number: None

PATIENT
  Age: 34 Year
  Sex: Female
  Weight: 606.9 kg

DRUGS (4)
  1. FERRLECIT [Suspect]
     Indication: IRON DEFICIENCY ANAEMIA
     Dosage: 125MG
     Route: 041
     Dates: start: 20120404, end: 20120404
  2. SERTRALINE HYDROCHLORIDE [Concomitant]
  3. ALPRAZOLAM [Concomitant]
  4. ALPRAZOLAM [Concomitant]

REACTIONS (13)
  - INFUSION RELATED REACTION [None]
  - ABDOMINAL PAIN [None]
  - OROPHARYNGEAL PAIN [None]
  - DYSPNOEA [None]
  - MALAISE [None]
  - BACK PAIN [None]
  - OEDEMA PERIPHERAL [None]
  - URTICARIA [None]
  - NAUSEA [None]
  - DIZZINESS [None]
  - FLUSHING [None]
  - HYPERSENSITIVITY [None]
  - JOINT STIFFNESS [None]
